FAERS Safety Report 13085758 (Version 1)
Quarter: 2017Q1

REPORT INFORMATION
  Report Type: Other
  Country: GB (occurrence: GB)
  Receive Date: 20170104
  Receipt Date: 20170104
  Transmission Date: 20170428
  Serious: Yes (Hospitalization)
  Sender: FDA-Public Use
  Company Number: GB-RARE DISEASE THERAPEUTICS, INC.-1061528

PATIENT
  Age: 38 Year
  Sex: Female

DRUGS (3)
  1. PURIXAN [Suspect]
     Active Substance: MERCAPTOPURINE
     Indication: CROHN^S DISEASE
     Route: 048
     Dates: start: 20161109, end: 20161207
  2. ADALIMUMAB [Concomitant]
     Active Substance: ADALIMUMAB
  3. ASACOL [Concomitant]
     Active Substance: MESALAMINE

REACTIONS (2)
  - Pancytopenia [Recovering/Resolving]
  - Off label use [None]

NARRATIVE: CASE EVENT DATE: 20161109
